FAERS Safety Report 7530707-9 (Version None)
Quarter: 2011Q2

REPORT INFORMATION
  Report Type: 
  Country: None (occurrence: None)
  Receive Date: 20110607
  Receipt Date: 20110603
  Transmission Date: 20111010
  Serious: Yes (Other)
  Sender: FDA-Public Use
  Company Number: US-ABBOTT-11P-163-0730337-00

PATIENT

DRUGS (1)
  1. HUMIRA [Suspect]
     Indication: CROHN'S DISEASE

REACTIONS (4)
  - CSF PROTEIN INCREASED [None]
  - MENINGITIS ASEPTIC [None]
  - BLOOD GLUCOSE DECREASED [None]
  - WHITE BLOOD CELL COUNT INCREASED [None]
